FAERS Safety Report 24119044 (Version 1)
Quarter: 2024Q3

REPORT INFORMATION
  Report Type: Spontaneous
  Country: US (occurrence: None)
  Receive Date: 20240718
  Receipt Date: 20240718
  Transmission Date: 20241017
  Serious: Yes (unspecified)
  Sender: Public
  Company Number: None

PATIENT
  Age: 44 Year
  Sex: Female
  Weight: 67.5 kg

DRUGS (1)
  1. QBREXZA [Suspect]
     Active Substance: GLYCOPYRRONIUM TOSYLATE
     Indication: Hyperhidrosis
     Dosage: OTHER QUANTITY : 1 WIPE;?OTHER FREQUENCY : EVERY OTHER BEDTIM;?
     Route: 061
     Dates: start: 20240601, end: 20240708

REACTIONS (8)
  - Vision blurred [None]
  - Dry eye [None]
  - Dry mouth [None]
  - Dry throat [None]
  - Choking [None]
  - Urinary retention [None]
  - Urine flow decreased [None]
  - Orthostatic hypotension [None]

NARRATIVE: CASE EVENT DATE: 20240701
